FAERS Safety Report 12593418 (Version 5)
Quarter: 2018Q1

REPORT INFORMATION
  Report Type: Report from Study
  Country: US (occurrence: US)
  Receive Date: 20160726
  Receipt Date: 20180105
  Transmission Date: 20180508
  Serious: No
  Sender: FDA-Public Use
  Company Number: US-AMGEN-USASL2016093114

PATIENT
  Age: 70 Year
  Sex: Female

DRUGS (1)
  1. REPATHA [Suspect]
     Active Substance: EVOLOCUMAB
     Indication: TYPE IIA HYPERLIPIDAEMIA
     Dosage: 140 MG, Q2WK
     Route: 058
     Dates: start: 201601

REACTIONS (6)
  - Feeling abnormal [Unknown]
  - Drug dose omission [Unknown]
  - Therapy non-responder [Unknown]
  - Injection site pain [Unknown]
  - Vomiting [Unknown]
  - Nausea [Unknown]
